FAERS Safety Report 17156086 (Version 2)
Quarter: 2020Q1

REPORT INFORMATION
  Report Type: Report from Study
  Country: None (occurrence: US)
  Receive Date: 20191216
  Receipt Date: 20200117
  Transmission Date: 20200409
  Serious: Yes (Other)
  Sender: FDA-Public Use
  Company Number: US-ABBVIE-19K-163-3188367-00

PATIENT
  Sex: Female

DRUGS (5)
  1. HUMIRA [Suspect]
     Active Substance: ADALIMUMAB
     Indication: RHEUMATOID ARTHRITIS
     Route: 058
     Dates: start: 2011, end: 2013
  2. HUMIRA [Suspect]
     Active Substance: ADALIMUMAB
     Route: 058
     Dates: start: 2013, end: 2015
  3. HUMIRA [Suspect]
     Active Substance: ADALIMUMAB
     Route: 058
     Dates: start: 2015
  4. HUMIRA [Suspect]
     Active Substance: ADALIMUMAB
     Route: 058
  5. HUMIRA [Suspect]
     Active Substance: ADALIMUMAB
     Route: 058
     Dates: end: 2017

REACTIONS (5)
  - Knee operation [Unknown]
  - Articular calcification [Unknown]
  - Limb operation [Unknown]
  - Facial paralysis [Unknown]
  - Osteoarthritis [Unknown]
